FAERS Safety Report 14444664 (Version 1)
Quarter: 2018Q1

REPORT INFORMATION
  Report Type: Spontaneous
  Country: US (occurrence: US)
  Receive Date: 20180126
  Receipt Date: 20180126
  Transmission Date: 20180509
  Serious: Yes (Other)
  Sender: FDA-Public Use
  Company Number: US-RECKITT BENCKISER HEALTHCARE INT LIMITED-RB-81078-2018

PATIENT
  Sex: Male

DRUGS (1)
  1. MUCINEX [Suspect]
     Active Substance: GUAIFENESIN
     Indication: OROPHARYNGEAL PAIN
     Dosage: 1 OR 2 GULPS
     Route: 048
     Dates: start: 20180119

REACTIONS (4)
  - Disturbance in attention [Unknown]
  - Confusional state [Unknown]
  - Dysarthria [Unknown]
  - Drug ineffective [Not Recovered/Not Resolved]

NARRATIVE: CASE EVENT DATE: 20180119
